FAERS Safety Report 5599977-0 (Version None)
Quarter: 2008Q1

REPORT INFORMATION
  Report Type: 
  Country: None (occurrence: None)
  Receive Date: 20080123
  Receipt Date: 20080118
  Transmission Date: 20080703
  Serious: Yes (Hospitalization, Other)
  Sender: FDA-Public Use
  Company Number: BR-ASTRAZENECA-2008UW01465

PATIENT
  Age: 76 Year
  Sex: Female
  Weight: 56 kg

DRUGS (2)
  1. ARIMIDEX [Suspect]
     Indication: BREAST CANCER
     Route: 048
     Dates: start: 20070801, end: 20070901
  2. TAMOXIFEN [Suspect]
     Indication: BREAST CANCER
     Route: 048
     Dates: start: 20070401, end: 20070801

REACTIONS (4)
  - DERMATITIS ALLERGIC [None]
  - HYPERSENSITIVITY [None]
  - OBLITERATIVE BRONCHIOLITIS [None]
  - PNEUMONIA [None]
